FAERS Safety Report 21965891 (Version 2)
Quarter: 2023Q1

REPORT INFORMATION
  Report Type: Spontaneous
  Country: BR (occurrence: BR)
  Receive Date: 20230208
  Receipt Date: 20230217
  Transmission Date: 20230418
  Serious: Yes (Other)
  Sender: FDA-Public Use
  Company Number: BR-ORGANON-O2302BRA000370

PATIENT
  Sex: Female
  Weight: 68 kg

DRUGS (2)
  1. NUVARING [Suspect]
     Active Substance: ETHINYL ESTRADIOL\ETONOGESTREL
     Indication: Hormone replacement therapy
     Dosage: 1 RING
     Route: 067
     Dates: start: 2008
  2. NUVARING [Suspect]
     Active Substance: ETHINYL ESTRADIOL\ETONOGESTREL
     Dosage: 1 RING
     Route: 067

REACTIONS (6)
  - Appendicitis [Unknown]
  - Panic disorder [Unknown]
  - Somatic symptom disorder [Unknown]
  - Product use in unapproved indication [Unknown]
  - Incorrect product administration duration [Unknown]
  - Product availability issue [Unknown]
